FAERS Safety Report 11618983 (Version 2)
Quarter: 2015Q4

REPORT INFORMATION
  Report Type: Spontaneous
  Country: PL (occurrence: PL)
  Receive Date: 20151012
  Receipt Date: 20151015
  Transmission Date: 20160304
  Serious: Yes (Other)
  Sender: FDA-Public Use
  Company Number: PHHY2015PL120466

PATIENT
  Age: 31 Year
  Sex: Female

DRUGS (1)
  1. SANDOSTATIN LAR DEPOT [Suspect]
     Active Substance: OCTREOTIDE ACETATE
     Indication: ACROMEGALY
     Dosage: 40 MG
     Route: 065

REACTIONS (6)
  - Forearm fracture [Unknown]
  - Albright^s disease [Unknown]
  - Insulin-like growth factor increased [Unknown]
  - Fibrous dysplasia of bone [Unknown]
  - Bone lesion [Unknown]
  - Calculus urinary [Unknown]
